FAERS Safety Report 7813054-7 (Version None)
Quarter: 2011Q4

REPORT INFORMATION
  Report Type: 
  Country: None (occurrence: None)
  Receive Date: 20111013
  Receipt Date: 20110929
  Transmission Date: 20120403
  Serious: Yes (Other)
  Sender: FDA-Public Use
  Company Number: PHHY2011JP86020

PATIENT
  Sex: Female

DRUGS (3)
  1. NEORAL [Suspect]
     Dosage: TWO CAPSULES
     Route: 048
     Dates: start: 20110927
  2. VITAMIN B NOS [Concomitant]
     Dosage: UNK UKN, UNK
  3. NEORAL [Suspect]
     Indication: PSORIATIC ARTHROPATHY
     Dosage: UNK UKN, UNK
     Route: 048
     Dates: start: 20110926

REACTIONS (13)
  - INCREASED APPETITE [None]
  - SWELLING FACE [None]
  - PANIC REACTION [None]
  - NASOPHARYNGITIS [None]
  - ASTHENIA [None]
  - RASH [None]
  - ABDOMINAL DISCOMFORT [None]
  - ARTHRALGIA [None]
  - LACK OF SATIETY [None]
  - DYSGEUSIA [None]
  - PYREXIA [None]
  - POLYURIA [None]
  - AGEUSIA [None]
